FAERS Safety Report 12899624 (Version 1)
Quarter: 2016Q4

REPORT INFORMATION
  Report Type: Spontaneous
  Country: US (occurrence: US)
  Receive Date: 20161101
  Receipt Date: 20161101
  Transmission Date: 20170207
  Serious: No
  Sender: FDA-Public Use
  Company Number: US-GLAXOSMITHKLINE-US2016GSK160280

PATIENT
  Sex: Female

DRUGS (1)
  1. NUCALA [Suspect]
     Active Substance: MEPOLIZUMAB
     Indication: ASTHMA
     Dosage: UNK, Z
     Dates: start: 201608

REACTIONS (17)
  - Muscular weakness [Unknown]
  - Injection site pruritus [Unknown]
  - Dysgeusia [Unknown]
  - Hot flush [Unknown]
  - Nervous system disorder [Unknown]
  - Mood swings [Unknown]
  - Injection site rash [Unknown]
  - Pain [Unknown]
  - Drug effect decreased [Unknown]
  - Vision blurred [Unknown]
  - Mobility decreased [Unknown]
  - Insomnia [Unknown]
  - Anxiety [Unknown]
  - Therapeutic response unexpected [Unknown]
  - Depression [Unknown]
  - Muscle spasms [Unknown]
  - Decreased appetite [Unknown]
